FAERS Safety Report 13346847 (Version 3)
Quarter: 2017Q4

REPORT INFORMATION
  Report Type: Spontaneous
  Country: US (occurrence: US)
  Receive Date: 20170317
  Receipt Date: 20171110
  Transmission Date: 20180320
  Serious: Yes (Other)
  Sender: FDA-Public Use
  Company Number: US-PFIZER INC-2017113501

PATIENT
  Age: 62 Year
  Sex: Female
  Weight: 98 kg

DRUGS (2)
  1. REVATIO [Suspect]
     Active Substance: SILDENAFIL CITRATE
     Indication: PULMONARY HYPERTENSION
     Dosage: 6 PILLS A DAY, 2 IN THE MORNING, 2 IN THE AFTERNOON AND 2 AT THE NIGHT
     Route: 048
  2. XIFAXAN [Concomitant]
     Active Substance: RIFAXIMIN
     Indication: HEPATIC ENCEPHALOPATHY
     Dosage: UNK
     Route: 048

REACTIONS (8)
  - Ophthalmic herpes zoster [Not Recovered/Not Resolved]
  - Laboratory test abnormal [Unknown]
  - Nervousness [Unknown]
  - Product use issue [Unknown]
  - Therapeutic response unexpected [Unknown]
  - Malaise [Unknown]
  - Visual impairment [Unknown]
  - Cardiac valve disease [Unknown]

NARRATIVE: CASE EVENT DATE: 201703
